FAERS Safety Report 7390363-X (Version None)
Quarter: 2011Q1

REPORT INFORMATION
  Report Type: 
  Country: None (occurrence: None)
  Receive Date: 20110325
  Receipt Date: 20110317
  Transmission Date: 20110831
  Serious: Yes (Hospitalization)
  Sender: FDA-Public Use
  Company Number: WAES 1103USA02414

PATIENT
  Age: 71 Year
  Sex: Male
  Weight: 87.9978 kg

DRUGS (19)
  1. AVELOX [Concomitant]
  2. AMIODARONE HCL [Concomitant]
  3. EPLERENONE UNK [Suspect]
     Dosage: 25 MG/QOD/PO
     Route: 048
     Dates: start: 20100915
  4. LASIX [Concomitant]
  5. CYANOCOBALAMIN [Concomitant]
  6. WARFARIN [Concomitant]
  7. NOVOLOG [Concomitant]
  8. PERCOCET [Concomitant]
  9. PRINIVIL [Suspect]
     Dosage: PO; PO
     Route: 048
     Dates: start: 20050309, end: 20110228
  10. PRINIVIL [Suspect]
     Dosage: PO; PO
     Route: 048
     Dates: start: 20110301
  11. SIMVASTATIN [Concomitant]
  12. COREG [Suspect]
     Dosage: PO; PO
     Route: 048
     Dates: start: 20050309, end: 20110228
  13. COREG [Suspect]
     Dosage: PO; PO
     Route: 048
     Dates: start: 20110301
  14. LANTUS [Concomitant]
  15. PREDNISONE [Concomitant]
  16. FLOMAX [Concomitant]
  17. METHIMAZOL [Concomitant]
  18. ASPIRIN [Concomitant]
  19. LIRAGLUTIDE [Concomitant]

REACTIONS (7)
  - FATIGUE [None]
  - IMPLANTABLE DEFIBRILLATOR INSERTION [None]
  - RESPIRATORY RATE DECREASED [None]
  - ATRIAL FLUTTER [None]
  - ASTHENIA [None]
  - HEART RATE INCREASED [None]
  - HYPOTENSION [None]
